FAERS Safety Report 5164511-6 (Version None)
Quarter: 2006Q4

REPORT INFORMATION
  Report Type: 
  Country: None (occurrence: None)
  Receive Date: 20061205
  Receipt Date: 20061027
  Transmission Date: 20070319
  Serious: Yes (Other)
  Sender: FDA-Public Use
  Company Number: PHRM2006FR02941

PATIENT
  Age: 66 Year
  Sex: Female
  Weight: 79 kg

DRUGS (4)
  1. ZOMETA [Suspect]
     Indication: METASTASES TO BONE
     Dosage: 4 MG, EVERY MONTH
     Route: 042
     Dates: start: 20050318, end: 20060301
  2. NAVELBINE [Concomitant]
     Indication: NEOPLASM RECURRENCE
  3. FEMARA [Concomitant]
     Indication: BREAST CANCER
     Route: 048
  4. ZOLPIDEM TARTRATE [Concomitant]

REACTIONS (3)
  - GINGIVAL INJURY [None]
  - OSTEONECROSIS [None]
  - TOOTH INFECTION [None]
